FAERS Safety Report 15821988 (Version 1)
Quarter: 2019Q1

REPORT INFORMATION
  Report Type: Spontaneous
  Country: US (occurrence: US)
  Receive Date: 20190114
  Receipt Date: 20190114
  Transmission Date: 20190417
  Serious: Yes (Other)
  Sender: FDA-Public Use
  Company Number: US-VANDA PHARMACEUTICALS, INC-2018TASUS002375

PATIENT
  Age: 63 Year
  Sex: Female
  Weight: 95.24 kg

DRUGS (13)
  1. IBUPROFEN. [Concomitant]
     Active Substance: IBUPROFEN
     Indication: INSOMNIA
  2. PEPPERMINT. [Concomitant]
     Active Substance: PEPPERMINT
     Indication: VERTIGO
     Dosage: 2-3 DROPS APPLIED TO BACK OF NECK AND TOPS OF EARS, AS NEEDED
     Route: 061
  3. IBUPROFEN. [Concomitant]
     Active Substance: IBUPROFEN
     Indication: HEADACHE
     Dosage: 3-6 TABLETS DAILY
  4. FRANKINCENSE [Concomitant]
     Indication: BRAIN OEDEMA
     Dosage: 1 DROP APPLIED TO ROOF OF MOUTH DAILY
  5. SYNTHROID [Concomitant]
     Active Substance: LEVOTHYROXINE SODIUM
     Indication: HYPOTHYROIDISM
     Dosage: 100 MCG, QD
  6. MULTIVITAMIN FOR WOMEN [Concomitant]
     Indication: VITAMIN SUPPLEMENTATION
     Dosage: 1 DF, QD
  7. ESSENTIAL OILS NOS [Concomitant]
     Indication: BLOOD THYROID STIMULATING HORMONE
     Dosage: 2-3 DROPS ON THROAT DAILY
     Route: 061
  8. BAYER LOW DOSE [Concomitant]
     Active Substance: ASPIRIN
     Indication: CARDIAC DISORDER
     Dosage: 81 MG, QD
  9. IBUPROFEN. [Concomitant]
     Active Substance: IBUPROFEN
     Indication: MYALGIA
  10. FISH OIL [Concomitant]
     Active Substance: FISH OIL
     Indication: SUPPLEMENTATION THERAPY
     Dosage: 1 DF, QD
  11. HETLIOZ [Suspect]
     Active Substance: TASIMELTEON
     Indication: NON-24-HOUR SLEEP-WAKE DISORDER
     Dosage: 20 MG, QHS ON EMPTY STOMACH
     Route: 048
     Dates: start: 20180501, end: 20180628
  12. ZYLOPRIM [Concomitant]
     Active Substance: ALLOPURINOL
     Indication: GOUT
     Dosage: 100 MG, QD
  13. CALCIUM + VIT D [Concomitant]
     Active Substance: CALCIUM\VITAMIN D
     Indication: MINERAL SUPPLEMENTATION
     Dosage: 400 MG,2 TABLETS QD

REACTIONS (1)
  - Hepatic enzyme increased [Recovered/Resolved]

NARRATIVE: CASE EVENT DATE: 20180620
